FAERS Safety Report 8621734 (Version 3)
Quarter: 2012Q4

REPORT INFORMATION
  Report Type: 
  Country: US (occurrence: US)
  Receive Date: 20120619
  Receipt Date: 20120905
  Transmission Date: 20130627
  Serious: No
  Sender: FDA-Public Use
  Company Number: US-ASTRAZENECA-2012SE37265

PATIENT
  Age: 58 Year
  Sex: Female
  Weight: 47.6 kg

DRUGS (1)
  1. ZESTORETIC [Suspect]
     Indication: HYPERTENSION
     Dosage: 10+12.5 MG DAILY
     Route: 048
     Dates: start: 200103

REACTIONS (5)
  - Pollakiuria [Unknown]
  - Hypokalaemia [Unknown]
  - Feeling abnormal [Unknown]
  - Dizziness [Unknown]
  - Off label use [Unknown]
